FAERS Safety Report 25471160 (Version 1)
Quarter: 2025Q2

REPORT INFORMATION
  Report Type: Spontaneous
  Country: US (occurrence: US)
  Receive Date: 20250624
  Receipt Date: 20250624
  Transmission Date: 20250716
  Serious: Yes (Death, Hospitalization)
  Sender: AMGEN
  Company Number: US-AMGEN-USASP2025119744

PATIENT
  Age: 89 Year
  Sex: Male

DRUGS (1)
  1. REPATHA [Suspect]
     Active Substance: EVOLOCUMAB
     Indication: Blood cholesterol abnormal
     Dosage: UNK UNK, QMO
     Route: 065

REACTIONS (4)
  - Myocardial infarction [Fatal]
  - Transitional cell carcinoma metastatic [Unknown]
  - Palpitations [Unknown]
  - Asthenia [Unknown]

NARRATIVE: CASE EVENT DATE: 20250526
